FAERS Safety Report 8196405-6 (Version None)
Quarter: 2012Q1

REPORT INFORMATION
  Report Type: 
  Country: None (occurrence: None)
  Receive Date: 20120307
  Receipt Date: 20120307
  Transmission Date: 20120608
  Serious: Yes (Life-Threatening, Hospitalization)
  Sender: FDA-Public Use
  Company Number: None

PATIENT

DRUGS (1)
  1. LISINOPRIL [Suspect]
     Dosage: MG EVERY DAY PO
     Route: 048
     Dates: start: 20050201, end: 20120127

REACTIONS (1)
  - ANGIOEDEMA [None]
